FAERS Safety Report 14378909 (Version 1)
Quarter: 2018Q1

REPORT INFORMATION
  Report Type: Other
  Country: FR (occurrence: FR)
  Receive Date: 20180112
  Receipt Date: 20180112
  Transmission Date: 20180509
  Serious: Yes (Hospitalization)
  Sender: FDA-Public Use
  Company Number: FR-GLENMARK PHARMACEUTICALS-2018GMK030496

PATIENT

DRUGS (2)
  1. BENDAMUSTINE [Suspect]
     Active Substance: BENDAMUSTINE
     Indication: CHRONIC LYMPHOCYTIC LEUKAEMIA
     Dosage: UNK
     Route: 065
     Dates: start: 20170807, end: 20170929
  2. RITUXIMAB. [Suspect]
     Active Substance: RITUXIMAB
     Indication: CHRONIC LYMPHOCYTIC LEUKAEMIA
     Dosage: UNK
     Route: 042
     Dates: start: 20170807, end: 20171013

REACTIONS (2)
  - Febrile bone marrow aplasia [Not Recovered/Not Resolved]
  - Pancytopenia [Not Recovered/Not Resolved]

NARRATIVE: CASE EVENT DATE: 201710
